FAERS Safety Report 8185894 (Version 3)
Quarter: 2013Q2

REPORT INFORMATION
  Report Type: Report from Study
  Country: ES (occurrence: ES)
  Receive Date: 20111018
  Receipt Date: 20130613
  Transmission Date: 20140414
  Serious: Yes (Death, Life-Threatening, Hospitalization)
  Sender: FDA-Public Use
  Company Number: ES-CELGENEUS-144-21880-11100565

PATIENT
  Age: 70 Year
  Sex: Male

DRUGS (9)
  1. REVLIMID [Suspect]
     Indication: PLASMA CELL MYELOMA
     Route: 048
     Dates: start: 20110715, end: 20111005
  2. REVLIMID [Suspect]
     Route: 048
     Dates: end: 20111009
  3. DEXAMETHASONE [Suspect]
     Indication: PLASMA CELL MYELOMA
     Route: 065
     Dates: start: 20110715, end: 20111005
  4. DEXAMETHASONE [Suspect]
     Route: 065
     Dates: end: 20111009
  5. VELCADE [Suspect]
     Indication: PLASMA CELL MYELOMA
     Route: 065
     Dates: start: 20110816, end: 20111009
  6. PREDNISONE [Suspect]
     Indication: PLASMA CELL MYELOMA
     Route: 065
     Dates: start: 20110816
  7. PREDNISONE [Suspect]
     Route: 065
     Dates: end: 20111009
  8. MELPHALAN [Suspect]
     Indication: PLASMA CELL MYELOMA
     Route: 065
     Dates: start: 20110816
  9. MELPHALAN [Suspect]
     Route: 065
     Dates: end: 20111009

REACTIONS (3)
  - Gastrointestinal haemorrhage [Recovered/Resolved]
  - Pyrexia [Unknown]
  - Septic shock [Fatal]
